FAERS Safety Report 5061356-2 (Version None)
Quarter: 2006Q3

REPORT INFORMATION
  Report Type: 
  Country: None (occurrence: None)
  Receive Date: 20060725
  Receipt Date: 20060717
  Transmission Date: 20061208
  Serious: Yes (Other)
  Sender: FDA-Public Use
  Company Number: US-GLAXOSMITHKLINE-A0612468A

PATIENT
  Age: 72 Year
  Sex: Male

DRUGS (2)
  1. CITRUCEL REGULAR SUSPENSION [Suspect]
     Indication: DRUG USE FOR UNKNOWN INDICATION
  2. IRON SUPPLEMENT [Suspect]
     Dosage: 3TAB PER DAY

REACTIONS (4)
  - ANAEMIA [None]
  - HAEMORRHAGE [None]
  - NAUSEA [None]
  - RED BLOOD CELL COUNT DECREASED [None]
